FAERS Safety Report 11410712 (Version 1)
Quarter: 2015Q3

REPORT INFORMATION
  Report Type: Spontaneous
  Country: NL (occurrence: NL)
  Receive Date: 20150824
  Receipt Date: 20150824
  Transmission Date: 20151125
  Serious: Yes (Hospitalization)
  Sender: FDA-Public Use
  Company Number: NL-TEVA-586594ISR

PATIENT
  Age: 58 Year
  Sex: Male
  Weight: 67 kg

DRUGS (4)
  1. CALCIUMCARB/COLECALC TAB 1,25G/800IE (500MG CA) [Concomitant]
     Dosage: 1 DOSAGE FORMS DAILY; 1 TIME PER DAY 1 PIECE (S)
     Route: 048
     Dates: start: 201501, end: 20150618
  2. SUMATRIPTAN DISPERTABLET  50MG [Concomitant]
     Dosage: IF NECESSARY
     Route: 048
     Dates: start: 2014
  3. METHOTREXATE (METHOTREXATE SODIUM) [Suspect]
     Active Substance: METHOTREXATE SODIUM
     Indication: RHEUMATOID ARTHRITIS
     Dosage: 1.7857 MILLIGRAM DAILY; 1 TIME PER WEEK 5 PIECE (S)
     Route: 048
     Dates: start: 201501, end: 20150709
  4. TAMSULOSINE CAPSULE MGA 0,4MG [Concomitant]
     Dosage: .4 MILLIGRAM DAILY; 1 TIME PER DAY 1 PIECE (S)
     Route: 048
     Dates: start: 2014

REACTIONS (1)
  - Hypercalcaemia [Recovering/Resolving]

NARRATIVE: CASE EVENT DATE: 201506
